FAERS Safety Report 16048217 (Version 1)
Quarter: 2019Q1

REPORT INFORMATION
  Report Type: Spontaneous
  Country: CN (occurrence: CN)
  Receive Date: 20190307
  Receipt Date: 20190307
  Transmission Date: 20190418
  Serious: Yes (Other)
  Sender: FDA-Public Use
  Company Number: CN-PFIZER INC-2019094606

PATIENT
  Age: 84 Year
  Sex: Male

DRUGS (7)
  1. TAN RE QING ZHU SHE YE [Concomitant]
     Indication: LUNG INFECTION
     Dosage: 20 ML, 1X/DAY
     Route: 041
     Dates: start: 20190207, end: 20190220
  2. BEI LAI [Concomitant]
     Indication: LUNG INFECTION
     Dosage: 30 MG, 3X/DAY
     Route: 048
     Dates: start: 20190207, end: 20190220
  3. SOLU-MEDROL [Suspect]
     Active Substance: METHYLPREDNISOLONE SODIUM SUCCINATE
     Indication: INFLAMMATION
     Dosage: 40 MG, 1X/DAY
     Route: 041
     Dates: start: 20190211, end: 20190214
  4. QING SHI GE [Suspect]
     Active Substance: .ALPHA.-ASARONE
     Indication: LUNG INFECTION
     Dosage: 16 MG, 2X/DAY
     Route: 041
     Dates: start: 20190207, end: 20190215
  5. ACETYLCYSTEINE. [Concomitant]
     Active Substance: ACETYLCYSTEINE
     Indication: PRODUCTIVE COUGH
     Dosage: 0.3 G, 2X/DAY
     Route: 055
     Dates: start: 20190207, end: 20190220
  6. SULPERAZON [Suspect]
     Active Substance: CEFOPERAZONE SODIUM\SULBACTAM SODIUM
     Indication: LUNG INFECTION
     Dosage: 3 G, 2X/DAY
     Route: 041
     Dates: start: 20190210, end: 20190215
  7. WEI DI [Suspect]
     Active Substance: PANTOPRAZOLE SODIUM
     Indication: GASTRIC DISORDER
     Dosage: 40 MG, 2X/DAY
     Route: 041
     Dates: start: 20190211, end: 20190220

REACTIONS (6)
  - Dysphoria [Unknown]
  - Tachyarrhythmia [Recovered/Resolved]
  - Platelet count decreased [Recovered/Resolved]
  - Bundle branch block right [None]
  - Atrial fibrillation [Recovered/Resolved]
  - Electrocardiogram ST segment abnormal [Recovered/Resolved]

NARRATIVE: CASE EVENT DATE: 20190215
